FAERS Safety Report 18252386 (Version 1)
Quarter: 2020Q3

REPORT INFORMATION
  Report Type: Spontaneous
  Country: US (occurrence: US)
  Receive Date: 20200910
  Receipt Date: 20200910
  Transmission Date: 20201103
  Serious: No
  Sender: FDA-Public Use
  Company Number: US-FARMAPROD-202006-0908

PATIENT
  Age: 31 Year
  Sex: Female

DRUGS (16)
  1. VITAMINE B12 [Concomitant]
     Active Substance: CYANOCOBALAMIN
  2. ATORVASTATIN CALCIUM. [Concomitant]
     Active Substance: ATORVASTATIN CALCIUM
  3. ZOLOFT [Concomitant]
     Active Substance: SERTRALINE HYDROCHLORIDE
  4. OXERVATE [Suspect]
     Active Substance: CENEGERMIN-BKBJ
     Indication: NEUROTROPHIC KERATOPATHY
     Route: 047
     Dates: start: 20200626
  5. CLONAZEPAM. [Concomitant]
     Active Substance: CLONAZEPAM
  6. FAMCICLOVIR. [Concomitant]
     Active Substance: FAMCICLOVIR
  7. FAMOTIDINE. [Concomitant]
     Active Substance: FAMOTIDINE
  8. SOOTHE XP [Concomitant]
     Active Substance: LIGHT MINERAL OIL\MINERAL OIL
     Dosage: 1%?4.5% DROPS
  9. PANTOPRAZOLE SODIUM. [Concomitant]
     Active Substance: PANTOPRAZOLE SODIUM
     Dosage: TABLET DELAY RELEASE
  10. REFRESH OPTIVE [Concomitant]
     Active Substance: CARBOXYMETHYLCELLULOSE SODIUM\GLYCERIN
     Dosage: 0.5%?0.9%
  11. COENZYME Q10 [Concomitant]
     Active Substance: DIETARY SUPPLEMENT\UBIDECARENONE
  12. METOPROLOL TARTRATE. [Concomitant]
     Active Substance: METOPROLOL TARTRATE
  13. SEROQUEL [Concomitant]
     Active Substance: QUETIAPINE FUMARATE
  14. VITAMINE D2 [Concomitant]
  15. TOPAMAX [Concomitant]
     Active Substance: TOPIRAMATE
  16. LAMICTAL [Concomitant]
     Active Substance: LAMOTRIGINE

REACTIONS (4)
  - Eye pain [Unknown]
  - Product use issue [Unknown]
  - Photophobia [Unknown]
  - Eye irritation [Unknown]

NARRATIVE: CASE EVENT DATE: 20200626
